FAERS Safety Report 7718284-0 (Version None)
Quarter: 2011Q3

REPORT INFORMATION
  Report Type: 
  Country: None (occurrence: None)
  Receive Date: 20110830
  Receipt Date: 20110824
  Transmission Date: 20111222
  Serious: Yes (Hospitalization)
  Sender: FDA-Public Use
  Company Number: CHPA2011AU11350

PATIENT
  Sex: Female

DRUGS (3)
  1. VOLTAREN [Suspect]
     Dosage: UNK, UNK
     Route: 065
  2. ASPIRIN [Concomitant]
  3. VOLTAREN [Suspect]
     Indication: VARICOSE VEIN
     Dosage: UNK, UNK
     Route: 065

REACTIONS (3)
  - FAECES DISCOLOURED [None]
  - HAEMORRHAGE [None]
  - OFF LABEL USE [None]
